FAERS Safety Report 11312550 (Version 1)
Quarter: 2015Q3

REPORT INFORMATION
  Report Type: Spontaneous
  Country: US (occurrence: None)
  Receive Date: 20150724
  Receipt Date: 20150724
  Transmission Date: 20151125
  Serious: No
  Sender: FDA-Public Use
  Company Number: None

PATIENT
  Age: 23 Year
  Sex: Male
  Weight: 72.58 kg

DRUGS (1)
  1. CHANTIX [Suspect]
     Active Substance: VARENICLINE TARTRATE
     Indication: SMOKING CESSATION THERAPY
     Route: 048
     Dates: start: 201306, end: 201308

REACTIONS (7)
  - Agitation [None]
  - Tremor [None]
  - Social avoidant behaviour [None]
  - Aggression [None]
  - Suicidal ideation [None]
  - Screaming [None]
  - Anger [None]
